FAERS Safety Report 6879968-X (Version None)
Quarter: 2010Q3

REPORT INFORMATION
  Report Type: 
  Country: None (occurrence: None)
  Receive Date: 20100728
  Receipt Date: 20100726
  Transmission Date: 20110219
  Serious: Yes (Death)
  Sender: FDA-Public Use
  Company Number: US-GILEAD-2010-0030439

PATIENT
  Sex: Female
  Weight: 158.9 kg

DRUGS (13)
  1. LETAIRIS [Suspect]
     Indication: PULMONARY ARTERIAL HYPERTENSION
     Route: 048
     Dates: start: 20100623, end: 20100722
  2. TORSEMIDE [Concomitant]
  3. REVATIO [Concomitant]
  4. HYDROCHLOROTHIAZIDE [Concomitant]
  5. COREG [Concomitant]
  6. CYCLOBENZAPRINE [Concomitant]
  7. VESICARE [Concomitant]
  8. AMOXICILLIN [Concomitant]
  9. SINGULAIR [Concomitant]
  10. PRILOSEC [Concomitant]
  11. LORTAB [Concomitant]
  12. POTASSIUM CHLORIDE [Concomitant]
  13. CORAL CALCIUM [Concomitant]

REACTIONS (2)
  - DEATH [None]
  - FLUID RETENTION [None]
